FAERS Safety Report 21731434 (Version 2)
Quarter: 2023Q1

REPORT INFORMATION
  Report Type: Spontaneous
  Country: ES (occurrence: ES)
  Receive Date: 20221215
  Receipt Date: 20230106
  Transmission Date: 20230418
  Serious: Yes (Hospitalization)
  Sender: FDA-Public Use
  Company Number: None

PATIENT
  Age: 61 Year
  Sex: Female

DRUGS (5)
  1. CAPECITABINE [Suspect]
     Active Substance: CAPECITABINE
     Indication: Adenocarcinoma of colon
     Dosage: 1800.0 MG C/12 H, (1224A)
     Route: 065
     Dates: start: 20220425, end: 20220505
  2. OXALIPLATIN [Suspect]
     Active Substance: OXALIPLATIN
     Indication: Adenocarcinoma of colon
     Dosage: (7351A)
     Route: 065
     Dates: start: 20220425, end: 20220425
  3. PROTEIN (UNSPECIFIED) [Concomitant]
     Indication: Adenocarcinoma of colon
     Dosage: 1.0 ENVELOPE EVERY 24 HOURS
     Route: 065
     Dates: start: 20220719
  4. ENOXAPARIN SODIUM [Concomitant]
     Active Substance: ENOXAPARIN SODIUM
     Indication: Adenocarcinoma of colon
     Dosage: 100.0 MG A-CE, 10,000 IU (100 MG)/1 ML, 30 PRE-FILLED SYRINGES OF 1 ML
     Route: 065
     Dates: start: 20220923
  5. ONDANSETRON NORMON [Concomitant]
     Indication: Adenocarcinoma of colon
     Dosage: 4.0 MG C/12 H, EFG, 15 TABLETS
     Route: 065
     Dates: start: 20220429

REACTIONS (3)
  - Asthenia [Recovered/Resolved]
  - Diarrhoea [Recovered/Resolved]
  - Nausea [Recovered/Resolved]

NARRATIVE: CASE EVENT DATE: 20220510
